FAERS Safety Report 18660630 (Version 1)
Quarter: 2020Q4

REPORT INFORMATION
  Report Type: Spontaneous
  Country: US (occurrence: US)
  Receive Date: 20201223
  Receipt Date: 20201223
  Transmission Date: 20210114
  Serious: Yes (Other)
  Sender: FDA-Public Use
  Company Number: None

PATIENT
  Age: 32 Year
  Sex: Male
  Weight: 74.39 kg

DRUGS (1)
  1. BUPRENORPHINE-NALOXONE FILMS [Suspect]
     Active Substance: BUPRENORPHINE HYDROCHLORIDE\NALOXONE HYDROCHLORIDE

REACTIONS (5)
  - Product use complaint [None]
  - Nausea [None]
  - Retching [None]
  - Vomiting [None]
  - Treatment noncompliance [None]

NARRATIVE: CASE EVENT DATE: 20201127
